FAERS Safety Report 8112262-8 (Version None)
Quarter: 2012Q1

REPORT INFORMATION
  Report Type: 
  Country: None (occurrence: None)
  Receive Date: 20120203
  Receipt Date: 20120203
  Transmission Date: 20120608
  Serious: No
  Sender: FDA-Public Use
  Company Number: None

PATIENT
  Age: 40 Year
  Sex: Female
  Weight: 77.11 kg

DRUGS (1)
  1. LO/OVRAL [Suspect]
     Dosage: 1 PILL
     Route: 048
     Dates: start: 20111201, end: 20120201

REACTIONS (1)
  - PRODUCT QUALITY ISSUE [None]
